FAERS Safety Report 11942744 (Version 1)
Quarter: 2016Q1

REPORT INFORMATION
  Report Type: Spontaneous
  Country: US (occurrence: US)
  Receive Date: 20160125
  Receipt Date: 20160125
  Transmission Date: 20160526
  Serious: No
  Sender: FDA-Public Use
  Company Number: US-UNITED THERAPEUTICS-UNT-2015-007385

PATIENT
  Age: 50 Year
  Sex: Female
  Weight: 99.32 kg

DRUGS (3)
  1. REMODULIN [Suspect]
     Active Substance: TREPROSTINIL
     Dosage: UNK
     Dates: start: 20150528
  2. REVATIO [Concomitant]
     Active Substance: SILDENAFIL CITRATE
     Indication: PRODUCT USED FOR UNKNOWN INDICATION
  3. REMODULIN [Suspect]
     Active Substance: TREPROSTINIL
     Indication: PULMONARY ARTERIAL HYPERTENSION
     Dosage: 0.0215 ?G/KG/MIN, CONTINUING
     Route: 058
     Dates: start: 20150507

REACTIONS (10)
  - Infusion site oedema [Recovering/Resolving]
  - Dyspnoea [Unknown]
  - Infusion site discharge [Unknown]
  - Abdominal discomfort [Unknown]
  - Headache [Unknown]
  - Nausea [Unknown]
  - Infusion site infection [Recovered/Resolved]
  - Complication associated with device [Unknown]
  - Infusion site erythema [Recovering/Resolving]
  - Catheterisation cardiac abnormal [Unknown]

NARRATIVE: CASE EVENT DATE: 201507
